FAERS Safety Report 8709634 (Version 4)
Quarter: 2012Q4

REPORT INFORMATION
  Report Type: Report from Study
  Country: DE (occurrence: DE)
  Receive Date: 20120806
  Receipt Date: 20121211
  Transmission Date: 20130627
  Serious: Yes (Hospitalization)
  Sender: FDA-Public Use
  Company Number: DE-GLAXOSMITHKLINE-B0813683B

PATIENT
  Sex: Female
  Weight: 50 kg

DRUGS (2)
  1. TOPOTECAN [Suspect]
     Indication: OVARIAN CANCER RECURRENT
     Dosage: 1.25MG Every 3 weeks
     Route: 042
     Dates: start: 20120514
  2. BLINDED TRIAL MEDICATION [Suspect]
     Indication: OVARIAN CANCER RECURRENT
     Dosage: 800MG Per day
     Route: 048
     Dates: start: 20120514

REACTIONS (2)
  - General physical health deterioration [Recovered/Resolved]
  - Ileus [Recovered/Resolved]
